FAERS Safety Report 14233002 (Version 1)
Quarter: 2017Q4

REPORT INFORMATION
  Report Type: Report from Study
  Country: IN (occurrence: IN)
  Receive Date: 20171129
  Receipt Date: 20171129
  Transmission Date: 20180321
  Serious: Yes (Hospitalization, Other)
  Sender: FDA-Public Use
  Company Number: PHHY2017IN159187

PATIENT
  Sex: Female
  Weight: 64 kg

DRUGS (2)
  1. VYMADA [Suspect]
     Active Substance: SACUBITRIL\VALSARTAN
     Indication: CARDIAC FAILURE
     Dosage: 100 MG, BID
     Route: 065
     Dates: start: 201705
  2. VYMADA [Suspect]
     Active Substance: SACUBITRIL\VALSARTAN
     Dosage: 200 MG, BID
     Route: 048
     Dates: start: 20170907

REACTIONS (6)
  - Bradycardia [Not Recovered/Not Resolved]
  - Ejection fraction decreased [Recovering/Resolving]
  - Nausea [Recovered/Resolved]
  - Hypotension [Not Recovered/Not Resolved]
  - Headache [Recovered/Resolved]
  - Pneumonitis [Recovered/Resolved]
